FAERS Safety Report 18641986 (Version 1)
Quarter: 2020Q4

REPORT INFORMATION
  Report Type: Spontaneous
  Country: US (occurrence: US)
  Receive Date: 20201221
  Receipt Date: 20201221
  Transmission Date: 20210114
  Serious: Yes (Other)
  Sender: FDA-Public Use
  Company Number: US-ABBVIE-20P-163-3662945-00

PATIENT
  Sex: Male
  Weight: 8.4 kg

DRUGS (1)
  1. SYNAGIS [Suspect]
     Active Substance: PALIVIZUMAB
     Indication: PRODUCT USED FOR UNKNOWN INDICATION
     Dosage: 100MG/1ML VL LIQUID
     Route: 030

REACTIONS (1)
  - Cardiac operation [Unknown]
